FAERS Safety Report 26095772 (Version 2)
Quarter: 2025Q4

REPORT INFORMATION
  Report Type: Spontaneous
  Country: US (occurrence: US)
  Receive Date: 20251127
  Receipt Date: 20251203
  Transmission Date: 20260117
  Serious: No
  Sender: ABBVIE
  Company Number: US-ABBVIE-6562708

PATIENT
  Age: 51 Year
  Sex: Female
  Weight: 78.471 kg

DRUGS (3)
  1. BOTOX [Suspect]
     Active Substance: ONABOTULINUMTOXINA
     Indication: Migraine
     Dosage: TIME INTERVAL: AS NECESSARY: DOSE: 155 UNIT, FREQUENCY: EVERY 3 MONTHS, THERAPEUTIC?FORM STRENGTH...
     Route: 030
     Dates: start: 20250212, end: 20250212
  2. PROPRANOLOL HYDROCHLORIDE [Concomitant]
     Active Substance: PROPRANOLOL HYDROCHLORIDE
     Indication: Migraine
     Route: 065
  3. Paramet [Concomitant]
     Indication: Migraine
     Route: 065

REACTIONS (12)
  - Dizziness [Not Recovered/Not Resolved]
  - Migraine [Not Recovered/Not Resolved]
  - Therapeutic response shortened [Unknown]
  - Oropharyngeal pain [Not Recovered/Not Resolved]
  - Vision blurred [Not Recovered/Not Resolved]
  - Balance disorder [Recovered/Resolved]
  - Injury [Recovered/Resolved]
  - Loss of personal independence in daily activities [Unknown]
  - Fall [Recovered/Resolved]
  - Back pain [Unknown]
  - Neck pain [Unknown]
  - Arthralgia [Unknown]

NARRATIVE: CASE EVENT DATE: 20250101
